FAERS Safety Report 14020442 (Version 2)
Quarter: 2017Q4

REPORT INFORMATION
  Report Type: Spontaneous
  Country: US (occurrence: US)
  Receive Date: 20170928
  Receipt Date: 20171013
  Transmission Date: 20180321
  Serious: No
  Sender: FDA-Public Use
  Company Number: US-BAYER-2017-185959

PATIENT
  Sex: Male
  Weight: 91.61 kg

DRUGS (1)
  1. MIRALAX [Suspect]
     Active Substance: POLYETHYLENE GLYCOL 3350
     Dosage: UNK UNK, QD
     Route: 048
     Dates: start: 2015

REACTIONS (5)
  - Incorrect drug administration duration [None]
  - Product use issue [None]
  - Product use in unapproved indication [None]
  - Product contamination physical [None]
  - Product use issue [None]

NARRATIVE: CASE EVENT DATE: 2015
